FAERS Safety Report 18267360 (Version 2)
Quarter: 2020Q4

REPORT INFORMATION
  Report Type: Spontaneous
  Country: JP (occurrence: JP)
  Receive Date: 20200915
  Receipt Date: 20201201
  Transmission Date: 20210113
  Serious: Yes (Other)
  Sender: FDA-Public Use
  Company Number: JP-ORION CORPORATION ORION PHARMA-ENTC2020-0250

PATIENT
  Age: 76 Year
  Sex: Male

DRUGS (1)
  1. STALEVO [Suspect]
     Active Substance: CARBIDOPA\ENTACAPONE\LEVODOPA
     Indication: PARKINSON^S DISEASE
     Dosage: LEVODOPA 50MG-CARBIDOPA 5.4MG-ENTACAPONE 100 MG, TID(MORNING, NOON, NIGHT)
     Route: 048

REACTIONS (2)
  - Condition aggravated [Recovering/Resolving]
  - Choking [Recovering/Resolving]
